FAERS Safety Report 19672441 (Version 1)
Quarter: 2021Q3

REPORT INFORMATION
  Report Type: Spontaneous
  Country: US (occurrence: US)
  Receive Date: 20210808
  Receipt Date: 20210808
  Transmission Date: 20211014
  Serious: No
  Sender: FDA-Public Use
  Company Number: US-ORGANON-O2108USA000081

PATIENT
  Sex: Female

DRUGS (3)
  1. PREGNYL [Suspect]
     Active Substance: CHORIOGONADOTROPIN ALFA
     Dosage: UNK
     Dates: start: 202107
  2. STERILE WATER [Suspect]
     Active Substance: WATER
     Dosage: UNK
  3. PREGNYL [Suspect]
     Active Substance: CHORIOGONADOTROPIN ALFA
     Dosage: 1ST AND 2ND COURSE

REACTIONS (4)
  - Weight decreased [Unknown]
  - Hunger [Unknown]
  - Weight loss poor [Unknown]
  - Drug ineffective [Unknown]
